FAERS Safety Report 5531914-7 (Version None)
Quarter: 2007Q4

REPORT INFORMATION
  Report Type: 
  Country: None (occurrence: None)
  Receive Date: 20071119
  Receipt Date: 20070905
  Transmission Date: 20080405
  Serious: No
  Sender: FDA-Public Use
  Company Number: TPA2007A01863

PATIENT
  Age: 53 Year
  Sex: Female
  Weight: 77.1115 kg

DRUGS (2)
  1. ROZEREM [Suspect]
     Indication: CIRCADIAN RHYTHM SLEEP DISORDER
     Dosage: 8 MG, QHS, PER ORAL
     Route: 048
     Dates: start: 20070804, end: 20070815
  2. XANAX [Suspect]
     Indication: SLEEP DISORDER
     Dosage: 0.5 MG, QHS, PER ORAL
     Route: 048
     Dates: start: 20070815

REACTIONS (2)
  - FEELING ABNORMAL [None]
  - MIDDLE INSOMNIA [None]
